FAERS Safety Report 13791669 (Version 7)
Quarter: 2021Q1

REPORT INFORMATION
  Report Type: Report from Study
  Country: JP (occurrence: JP)
  Receive Date: 20170725
  Receipt Date: 20210127
  Transmission Date: 20210419
  Serious: Yes (Other)
  Sender: FDA-Public Use
  Company Number: JP-BRISTOL-MYERS SQUIBB COMPANY-BMS-2017-066120

PATIENT
  Age: 66 Year
  Sex: Female
  Weight: 61 kg

DRUGS (1)
  1. NIVOLUMAB [Suspect]
     Active Substance: NIVOLUMAB
     Indication: MALIGNANT MELANOMA
     Dosage: 3 MILLIGRAM/KILOGRAM
     Route: 041
     Dates: start: 20161122, end: 20170724

REACTIONS (8)
  - Atrial fibrillation [Recovering/Resolving]
  - Stomatitis [Recovered/Resolved]
  - Hyperthyroidism [Recovered/Resolved]
  - Diarrhoea [Recovering/Resolving]
  - Thyroiditis [Unknown]
  - Myalgia [Recovering/Resolving]
  - Hypothyroidism [Recovered/Resolved]
  - Fatigue [Recovered/Resolved]

NARRATIVE: CASE EVENT DATE: 20161219
